FAERS Safety Report 19350853 (Version 4)
Quarter: 2022Q3

REPORT INFORMATION
  Report Type: Spontaneous
  Country: AT (occurrence: AT)
  Receive Date: 20210531
  Receipt Date: 20220912
  Transmission Date: 20221026
  Serious: Yes (Hospitalization, Other)
  Sender: FDA-Public Use
  Company Number: None

PATIENT
  Age: 72 Year
  Sex: Female
  Weight: 53 kg

DRUGS (33)
  1. DOCETAXEL [Suspect]
     Active Substance: DOCETAXEL
     Indication: HER2 positive breast cancer
     Dosage: RECENT DOSE OF 13/OCT/2016
     Route: 042
     Dates: start: 20160629, end: 20161013
  2. RIBOCICLIB [Suspect]
     Active Substance: RIBOCICLIB
     Indication: HER2 positive breast cancer
     Route: 048
     Dates: start: 20200716, end: 20200814
  3. RIBOCICLIB [Suspect]
     Active Substance: RIBOCICLIB
     Route: 048
     Dates: start: 20201024
  4. RIBOCICLIB [Suspect]
     Active Substance: RIBOCICLIB
     Route: 048
     Dates: start: 20200824
  5. LETROZOLE [Suspect]
     Active Substance: LETROZOLE
     Indication: HER2 positive breast cancer
     Route: 048
     Dates: start: 20161021, end: 20200629
  6. PERTUZUMAB [Suspect]
     Active Substance: PERTUZUMAB
     Indication: HER2 positive breast cancer
     Route: 042
     Dates: start: 20160629, end: 20180621
  7. PERTUZUMAB [Suspect]
     Active Substance: PERTUZUMAB
     Route: 042
     Dates: start: 20200227
  8. PERTUZUMAB [Suspect]
     Active Substance: PERTUZUMAB
     Route: 042
     Dates: start: 20180719, end: 20200227
  9. FULVESTRANT [Suspect]
     Active Substance: FULVESTRANT
     Indication: HER2 positive breast cancer
     Route: 058
     Dates: start: 20200716
  10. TRASTUZUMAB [Suspect]
     Active Substance: TRASTUZUMAB
     Indication: HER2 positive breast cancer
     Route: 041
     Dates: start: 20180719, end: 20200227
  11. TRASTUZUMAB [Suspect]
     Active Substance: TRASTUZUMAB
     Route: 041
     Dates: start: 20200227, end: 20200520
  12. TRASTUZUMAB [Suspect]
     Active Substance: TRASTUZUMAB
     Route: 041
     Dates: start: 20160629, end: 20180621
  13. DENOSUMAB [Suspect]
     Active Substance: DENOSUMAB
     Indication: HER2 positive breast cancer
     Route: 058
     Dates: start: 20161121, end: 20210126
  14. DENOSUMAB [Suspect]
     Active Substance: DENOSUMAB
     Route: 058
     Dates: start: 20161121
  15. DENOSUMAB [Suspect]
     Active Substance: DENOSUMAB
     Route: 058
     Dates: start: 20161121, end: 202101
  16. PALBOCICLIB [Suspect]
     Active Substance: PALBOCICLIB
     Indication: HER2 positive breast cancer
     Route: 048
     Dates: start: 202011, end: 202012
  17. PALBOCICLIB [Suspect]
     Active Substance: PALBOCICLIB
     Route: 048
     Dates: start: 202012, end: 202110
  18. METHYLPREDNISOLONE ACEPONATE [Concomitant]
     Active Substance: METHYLPREDNISOLONE ACEPONATE
     Indication: Palmar-plantar erythrodysaesthesia syndrome
     Route: 061
     Dates: start: 20201111
  19. EUTHYROX [Concomitant]
     Active Substance: LEVOTHYROXINE SODIUM
     Indication: Product used for unknown indication
     Route: 048
     Dates: start: 20210223
  20. EUTHYROX [Concomitant]
     Active Substance: LEVOTHYROXINE SODIUM
     Route: 048
     Dates: end: 20210222
  21. NEBIVOLOL HYDROCHLORIDE [Concomitant]
     Active Substance: NEBIVOLOL HYDROCHLORIDE
     Indication: Product used for unknown indication
     Route: 048
     Dates: start: 20170115
  22. ATORVASTATIN [Concomitant]
     Active Substance: ATORVASTATIN
     Indication: Hypercholesterolaemia
     Route: 048
     Dates: start: 201701, end: 201701
  23. BETAISODONA [Concomitant]
     Active Substance: POVIDONE-IODINE
     Indication: Paronychia
     Route: 061
     Dates: start: 20201111
  24. ASPIRIN [Concomitant]
     Active Substance: ASPIRIN
     Indication: Product used for unknown indication
     Route: 065
     Dates: start: 20170115
  25. BETAMETHASONE DIPROPIONATE [Concomitant]
     Active Substance: BETAMETHASONE DIPROPIONATE
     Indication: Rash
     Route: 061
     Dates: start: 20180621
  26. LISINOPRIL [Concomitant]
     Active Substance: LISINOPRIL
     Indication: Product used for unknown indication
     Route: 048
     Dates: start: 20170115
  27. HYDROMORPHONE HYDROCHLORIDE [Concomitant]
     Active Substance: HYDROMORPHONE HYDROCHLORIDE
     Indication: Pain
     Route: 048
     Dates: start: 202109, end: 202109
  28. HYDROMORPHONE HYDROCHLORIDE [Concomitant]
     Active Substance: HYDROMORPHONE HYDROCHLORIDE
     Route: 048
     Dates: start: 202109, end: 202109
  29. ENOXAPARIN SODIUM [Concomitant]
     Active Substance: ENOXAPARIN SODIUM
     Indication: Product used for unknown indication
     Route: 058
     Dates: start: 202109, end: 202109
  30. SODIUM CHLORIDE [Concomitant]
     Active Substance: SODIUM CHLORIDE
     Indication: Hypercalcaemia
     Route: 042
     Dates: start: 202109, end: 202109
  31. XGEVA [Concomitant]
     Active Substance: DENOSUMAB
     Indication: Hypercalcaemia
     Route: 058
     Dates: end: 202109
  32. PANTOPRAZOLE SODIUM [Concomitant]
     Active Substance: PANTOPRAZOLE SODIUM
     Indication: Gastritis
     Route: 048
     Dates: start: 202111, end: 20211115
  33. LISINOPRIL [Concomitant]
     Active Substance: LISINOPRIL
     Indication: Product used for unknown indication
     Dates: start: 201701, end: 202109

REACTIONS (1)
  - Osteonecrosis of jaw [Recovered/Resolved]

NARRATIVE: CASE EVENT DATE: 20201215
